FAERS Safety Report 6251786-5 (Version None)
Quarter: 2009Q2

REPORT INFORMATION
  Report Type: 
  Country: None (occurrence: None)
  Receive Date: 20090630
  Receipt Date: 20090624
  Transmission Date: 20091009
  Serious: Yes (Death, Hospitalization)
  Sender: FDA-Public Use
  Company Number: US-GILEAD-2009-0020509

PATIENT
  Sex: Male
  Weight: 98.518 kg

DRUGS (20)
  1. LETAIRIS [Suspect]
     Indication: PULMONARY ARTERIAL HYPERTENSION
  2. AMIODARONE HCL [Concomitant]
  3. LISINOPRIL [Concomitant]
  4. BUMEX [Concomitant]
  5. METOLAZONE [Concomitant]
  6. TOPROL-XL [Concomitant]
  7. PLAVIX [Concomitant]
  8. SIMVASTATIN [Concomitant]
  9. NPH ILETIN II [Concomitant]
  10. SYNTHROID [Concomitant]
  11. NEURONTIN [Concomitant]
  12. VALIUM [Concomitant]
  13. TEMAZEPAM [Concomitant]
  14. ATIVAN [Concomitant]
  15. REGLAN [Concomitant]
  16. PANTOPRAZOLE SODIUM [Concomitant]
  17. VITAMIN B-12 [Concomitant]
  18. FOLIC ACID [Concomitant]
  19. MOM [Concomitant]
  20. DOCUSATE [Concomitant]

REACTIONS (3)
  - CARDIAC FAILURE CONGESTIVE [None]
  - ISCHAEMIC CARDIOMYOPATHY [None]
  - RENAL FAILURE CHRONIC [None]
